FAERS Safety Report 16558300 (Version 1)
Quarter: 2019Q3

REPORT INFORMATION
  Report Type: Report from Study
  Country: IT (occurrence: IT)
  Receive Date: 20190711
  Receipt Date: 20190711
  Transmission Date: 20191004
  Serious: Yes (Other)
  Sender: FDA-Public Use
  Company Number: IT-TEVA-2019-IT-1074814

PATIENT
  Age: 35 Year
  Sex: Female

DRUGS (1)
  1. AMOXICILLIN. [Suspect]
     Active Substance: AMOXICILLIN
     Indication: INFLUENZA
     Dosage: 2 DOSAGE FORMS DAILY;
     Route: 048
     Dates: start: 20190302, end: 20190302

REACTIONS (4)
  - Paraesthesia [Recovering/Resolving]
  - Visual impairment [Recovering/Resolving]
  - Hypersensitivity [Recovering/Resolving]
  - Hypotony of eye [Recovering/Resolving]

NARRATIVE: CASE EVENT DATE: 20190302
